FAERS Safety Report 16469620 (Version 3)
Quarter: 2019Q3

REPORT INFORMATION
  Report Type: Spontaneous
  Country: BG (occurrence: BG)
  Receive Date: 20190624
  Receipt Date: 20190802
  Transmission Date: 20191004
  Serious: Yes (Life-Threatening, Hospitalization)
  Sender: FDA-Public Use
  Company Number: BG-ASTRAZENECA-2019SE91207

PATIENT
  Age: 85 Year
  Sex: Male

DRUGS (7)
  1. BRILIQUE [Suspect]
     Active Substance: TICAGRELOR
     Indication: ACUTE MYOCARDIAL INFARCTION
     Route: 048
     Dates: start: 201808
  2. ROSWERA [Concomitant]
     Active Substance: ROSUVASTATIN
  3. BETALOC ZOK [Concomitant]
     Active Substance: METOPROLOL SUCCINATE
  4. BRILIQUE [Suspect]
     Active Substance: TICAGRELOR
     Indication: STENT PLACEMENT
     Route: 048
     Dates: start: 201808
  5. METFOGAMMA [Concomitant]
     Active Substance: METFORMIN HYDROCHLORIDE
  6. PRESTARIUM [Concomitant]
     Active Substance: PERINDOPRIL
  7. DIAPREL [Concomitant]
     Active Substance: GLICLAZIDE

REACTIONS (6)
  - Angina pectoris [Unknown]
  - Balance disorder [Unknown]
  - Movement disorder [Unknown]
  - Cerebral haemorrhage [Unknown]
  - Disorientation [Unknown]
  - Angina unstable [Unknown]

NARRATIVE: CASE EVENT DATE: 201808
